FAERS Safety Report 5638826-9 (Version None)
Quarter: 2008Q1

REPORT INFORMATION
  Report Type: 
  Country: None (occurrence: None)
  Receive Date: 20080226
  Receipt Date: 20080218
  Transmission Date: 20080703
  Serious: Yes (Other)
  Sender: FDA-Public Use
  Company Number: PHBS2008ES02555

PATIENT
  Age: 37 Year
  Sex: Female

DRUGS (3)
  1. CARBAMAZEPINE [Suspect]
     Indication: EPILEPSY
  2. LAMOTRIGINE [Suspect]
  3. VENLAFAXINE HCL [Suspect]

REACTIONS (3)
  - HYPONATRAEMIA [None]
  - INAPPROPRIATE ANTIDIURETIC HORMONE SECRETION [None]
  - SYNCOPE [None]
